FAERS Safety Report 9776064 (Version 1)
Quarter: 2013Q4

REPORT INFORMATION
  Report Type: Spontaneous
  Country: FR (occurrence: FR)
  Receive Date: 20131220
  Receipt Date: 20131220
  Transmission Date: 20140711
  Serious: Yes (Death, Hospitalization)
  Sender: FDA-Public Use
  Company Number: FR-PFIZER INC-2013360480

PATIENT
  Age: 78 Year
  Sex: Female

DRUGS (14)
  1. TAHOR [Suspect]
     Dosage: 80 MG, 1X/DAY
     Route: 048
     Dates: start: 20131129, end: 20131203
  2. BRILIQUE [Suspect]
     Dosage: 180 MG, 1X/DAY
     Route: 048
     Dates: start: 20131129, end: 20131203
  3. KARDEGIC [Suspect]
     Dosage: 75 MG, 1X/DAY
     Route: 048
     Dates: start: 20131129, end: 20131203
  4. LOVENOX [Suspect]
     Dosage: 6000 IU, 1X/DAY
     Route: 058
     Dates: start: 20131129, end: 20131203
  5. BISOCE [Suspect]
     Dosage: 2.5 MG, 1X/DAY
     Route: 048
     Dates: start: 20131129, end: 20131203
  6. EUPRESSYL [Concomitant]
     Dosage: 60 MG, DAILY
  7. TEMERIT [Concomitant]
     Dosage: 5 MG, DAILY
  8. LERCAN [Concomitant]
     Dosage: 20 MG, DAILY
  9. ATACAND [Concomitant]
     Dosage: 8 MG, DAILY
  10. LASILIX [Concomitant]
     Dosage: 40 MG, DAILY
  11. UVEDOSE [Concomitant]
     Indication: PAIN
     Dosage: IF PAIN
  12. DOLIPRANE [Concomitant]
     Indication: PAIN
     Dosage: IF PAIN
  13. DIFFU K [Concomitant]
     Dosage: UNK
     Dates: start: 20131129, end: 20131201
  14. ATARAX [Concomitant]
     Dosage: 25 MG, SINGLE
     Dates: start: 20131129, end: 20131129

REACTIONS (1)
  - Haemorrhagic stroke [Fatal]
